FAERS Safety Report 8016215-X (Version None)
Quarter: 2011Q4

REPORT INFORMATION
  Report Type: 
  Country: None (occurrence: None)
  Receive Date: 20111228
  Receipt Date: 20111228
  Transmission Date: 20120403
  Serious: Yes (Other)
  Sender: FDA-Public Use
  Company Number: None

PATIENT
  Age: 25 Year
  Sex: Male
  Weight: 79.3795 kg

DRUGS (2)
  1. PROPECIA [Suspect]
     Indication: ANDROGENETIC ALOPECIA
     Dosage: 1.0 MG ONCE DAILY
     Dates: start: 20081101
  2. PROPECIA [Suspect]
     Indication: ANDROGENETIC ALOPECIA
     Dosage: 1.0 MG ONCE DAILY
     Dates: start: 20080208

REACTIONS (3)
  - SEXUAL DYSFUNCTION [None]
  - MAJOR DEPRESSION [None]
  - PANIC DISORDER [None]
